FAERS Safety Report 15834505 (Version 3)
Quarter: 2019Q1

REPORT INFORMATION
  Report Type: Report from Study
  Country: US (occurrence: US)
  Receive Date: 20190116
  Receipt Date: 20190221
  Transmission Date: 20190417
  Serious: Yes (Hospitalization)
  Sender: FDA-Public Use
  Company Number: US-EXELIXIS-XL18419018194

PATIENT
  Age: 16 Year
  Sex: Male
  Weight: 67.8 kg

DRUGS (6)
  1. XL184 [Suspect]
     Active Substance: CABOZANTINIB
     Indication: OSTEOSARCOMA
     Dosage: 40 MG/M2, QD
     Route: 048
     Dates: start: 20181109
  2. TRAMADOL. [Concomitant]
     Active Substance: TRAMADOL
  3. SERTRALINE [Concomitant]
     Active Substance: SERTRALINE HYDROCHLORIDE
  4. ANTHRACYCLINES AND RELATED SUBSTANCES [Concomitant]
     Active Substance: UNSPECIFIED INGREDIENT
  5. LISINOPRIL. [Concomitant]
     Active Substance: LISINOPRIL
  6. GRANISETRON [Concomitant]
     Active Substance: GRANISETRON

REACTIONS (3)
  - Ejection fraction decreased [Recovered/Resolved with Sequelae]
  - Cardiac failure [Recovered/Resolved with Sequelae]
  - Left ventricular dysfunction [Recovered/Resolved with Sequelae]

NARRATIVE: CASE EVENT DATE: 20181206
